FAERS Safety Report 12894859 (Version 2)
Quarter: 2016Q4

REPORT INFORMATION
  Report Type: Other
  Country: IT (occurrence: IT)
  Receive Date: 20161028
  Receipt Date: 20161028
  Transmission Date: 20170207
  Serious: Yes (Other)
  Sender: FDA-Public Use
  Company Number: IT-APOTEX-2016AP013532

PATIENT
  Age: 90 Year
  Sex: Male
  Weight: 73 kg

DRUGS (2)
  1. QUETIAPINA DOC GENERICI COMPRESSE RIVESTITE CON FILM [Suspect]
     Active Substance: QUETIAPINE
     Indication: DEMENTIA
     Dosage: 25 MG, QD
     Route: 048
     Dates: start: 20160921
  2. QUETIAPINA DOC GENERICI COMPRESSE RIVESTITE CON FILM [Suspect]
     Active Substance: QUETIAPINE
     Dosage: 25MG HALF DOSAGE FORM X2
     Route: 048

REACTIONS (2)
  - Dermatitis exfoliative [Recovering/Resolving]
  - Blister [Recovering/Resolving]

NARRATIVE: CASE EVENT DATE: 20161004
